FAERS Safety Report 7964576-X (Version None)
Quarter: 2011Q4

REPORT INFORMATION
  Report Type: 
  Country: None (occurrence: None)
  Receive Date: 20111208
  Receipt Date: 20111201
  Transmission Date: 20120403
  Serious: Yes (Hospitalization)
  Sender: FDA-Public Use
  Company Number: DE-UCBSA-044997

PATIENT
  Age: 33 Year
  Sex: Male
  Weight: 112.5 kg

DRUGS (6)
  1. RAMIPRIL [Concomitant]
     Indication: HYPERTONIA
     Route: 048
     Dates: start: 20110622
  2. CERTOLIZUMAB PEGOL [Suspect]
     Indication: SPONDYLITIS
     Route: 058
     Dates: start: 20110223, end: 20111102
  3. PANTOPRAZOLE SODIUM [Concomitant]
     Indication: GASTROINTESTINAL DISORDER
     Route: 048
     Dates: start: 20080101
  4. LORATADINE [Concomitant]
     Indication: RHINITIS ALLERGIC
     Route: 048
     Dates: start: 20110307
  5. LORATADINE [Concomitant]
     Indication: ACHROMOTRICHIA ACQUIRED
     Route: 048
     Dates: start: 20110307
  6. ARCOXIA [Concomitant]
     Indication: SPONDYLITIS
     Route: 048
     Dates: start: 20110723

REACTIONS (1)
  - SUBCUTANEOUS ABSCESS [None]
